FAERS Safety Report 14554044 (Version 1)
Quarter: 2018Q1

REPORT INFORMATION
  Report Type: Spontaneous
  Country: FR (occurrence: FR)
  Receive Date: 20180220
  Receipt Date: 20180220
  Transmission Date: 20180509
  Serious: Yes (Hospitalization)
  Sender: FDA-Public Use
  Company Number: FR-ALLERGAN-1809143US

PATIENT
  Age: 91 Year
  Sex: Male
  Weight: 87 kg

DRUGS (1)
  1. MEMANTINE HCL - BP [Suspect]
     Active Substance: MEMANTINE
     Indication: PRODUCT USED FOR UNKNOWN INDICATION
     Dosage: 20 MG, UNK
     Route: 048
     Dates: end: 20170713

REACTIONS (2)
  - Acute kidney injury [Recovering/Resolving]
  - Diarrhoea [Recovering/Resolving]

NARRATIVE: CASE EVENT DATE: 20170701
